FAERS Safety Report 4606862-7 (Version None)
Quarter: 2005Q1

REPORT INFORMATION
  Report Type: 
  Country: None (occurrence: None)
  Receive Date: 20050309
  Receipt Date: 20050225
  Transmission Date: 20050727
  Serious: Yes (Death)
  Sender: FDA-Public Use
  Company Number: MK200502-0264-1

PATIENT
  Age: 23 Year
  Sex: Female

DRUGS (4)
  1. ANAFRANIL CAP [Suspect]
  2. ACETAMINOPHEN [Concomitant]
  3. PROPOXYPHENE HCL [Concomitant]
  4. DIPHENDRAMINE [Concomitant]

REACTIONS (6)
  - ANALGESIC DRUG LEVEL INCREASED [None]
  - ANXIETY [None]
  - CARDIO-RESPIRATORY ARREST [None]
  - CONFUSIONAL STATE [None]
  - DYSPNOEA [None]
  - PNEUMONIA [None]
